FAERS Safety Report 21031362 (Version 2)
Quarter: 2022Q3

REPORT INFORMATION
  Report Type: Spontaneous
  Country: US (occurrence: US)
  Receive Date: 20220701
  Receipt Date: 20220715
  Transmission Date: 20221026
  Serious: No
  Sender: FDA-Public Use
  Company Number: US-LEO Pharma-343692

PATIENT
  Age: 64 Year
  Sex: Female

DRUGS (2)
  1. ADBRY [Suspect]
     Active Substance: TRALOKINUMAB-LDRM
     Indication: Dermatitis atopic
     Dosage: DOSAGE OF INITIAL DOSE NOT REPORTED THEN 300 MG EVERY TWO WEEKS SUBCUTANEOUSLY
     Route: 058
     Dates: start: 20220314
  2. LISINOPRIL [Concomitant]
     Active Substance: LISINOPRIL
     Indication: Hypertension

REACTIONS (1)
  - Drug ineffective [Unknown]
